FAERS Safety Report 23681173 (Version 4)
Quarter: 2024Q2

REPORT INFORMATION
  Report Type: Report from Study
  Country: JP (occurrence: JP)
  Receive Date: 20240328
  Receipt Date: 20240419
  Transmission Date: 20240716
  Serious: Yes (Death, Hospitalization)
  Sender: FDA-Public Use
  Company Number: JP-ABBVIE-5696306

PATIENT
  Age: 74 Year
  Sex: Female
  Weight: 43 kg

DRUGS (8)
  1. RINVOQ [Suspect]
     Active Substance: UPADACITINIB
     Indication: Rheumatoid arthritis
     Dosage: FORM STRENGTH: 7.5 MILLIGRAM
     Route: 048
     Dates: start: 20210506, end: 20220609
  2. AZOSEMIDE [Concomitant]
     Active Substance: AZOSEMIDE
     Indication: Product used for unknown indication
     Route: 048
  3. DIGOXIN [Concomitant]
     Active Substance: DIGOXIN
     Indication: Product used for unknown indication
     Route: 048
  4. EDOXABAN TOSYLATE [Concomitant]
     Active Substance: EDOXABAN TOSYLATE
     Indication: Product used for unknown indication
     Route: 048
  5. TOLVAPTAN [Concomitant]
     Active Substance: TOLVAPTAN
     Indication: Product used for unknown indication
     Route: 048
  6. BISOPROLOL FUMARATE [Concomitant]
     Active Substance: BISOPROLOL FUMARATE
     Indication: Product used for unknown indication
     Route: 048
  7. PREDNISOLONE [Concomitant]
     Active Substance: PREDNISOLONE
     Indication: Rheumatoid arthritis
     Route: 065
     Dates: start: 20200428
  8. PROGRAF [Suspect]
     Active Substance: TACROLIMUS
     Indication: Rheumatoid arthritis
     Route: 065
     Dates: start: 20200610

REACTIONS (1)
  - B-cell lymphoma [Fatal]

NARRATIVE: CASE EVENT DATE: 20220606
